FAERS Safety Report 19018571 (Version 2)
Quarter: 2021Q2

REPORT INFORMATION
  Report Type: Spontaneous
  Country: US (occurrence: US)
  Receive Date: 20210317
  Receipt Date: 20210413
  Transmission Date: 20210717
  Serious: No
  Sender: FDA-Public Use
  Company Number: US-ASTRAZENECA-2021A080934

PATIENT
  Sex: Female

DRUGS (1)
  1. BEVESPI AEROSPHERE [Suspect]
     Active Substance: FORMOTEROL FUMARATE\GLYCOPYRROLATE
     Indication: CHRONIC OBSTRUCTIVE PULMONARY DISEASE
     Dosage: 9 MCG OF 4.8 MCG 2 PUFFS TWICE A DAY
     Route: 055

REACTIONS (4)
  - Body height decreased [Unknown]
  - Device use issue [Unknown]
  - Product dose omission issue [Unknown]
  - Device issue [Unknown]
